FAERS Safety Report 5192235-8 (Version None)
Quarter: 2006Q4

REPORT INFORMATION
  Report Type: 
  Country: None (occurrence: None)
  Receive Date: 20061227
  Receipt Date: 20061030
  Transmission Date: 20070319
  Serious: Yes (Hospitalization)
  Sender: FDA-Public Use
  Company Number: FR-ROCHE-469719

PATIENT
  Age: 71 Year
  Sex: Female

DRUGS (7)
  1. CYMEVAN [Suspect]
     Indication: DRUG USE FOR UNKNOWN INDICATION
     Route: 042
     Dates: start: 20060923, end: 20061004
  2. BACTRIM [Suspect]
     Indication: DRUG USE FOR UNKNOWN INDICATION
     Route: 042
     Dates: start: 20060923, end: 20061011
  3. BACTRIM [Suspect]
     Route: 042
  4. FORTUM [Suspect]
     Indication: DRUG USE FOR UNKNOWN INDICATION
     Route: 042
     Dates: start: 20061002, end: 20061011
  5. LEDERFOLINE [Concomitant]
     Dosage: RECEIVED SINCE HOSPITALISATION, EXCEPT FOR FOUR DAYS.
     Dates: start: 20060922
  6. CELLCEPT [Concomitant]
     Dates: start: 20060324
  7. PROGRAF [Concomitant]
     Dates: start: 20060324

REACTIONS (1)
  - BONE MARROW FAILURE [None]
